FAERS Safety Report 9464842 (Version 6)
Quarter: 2013Q4

REPORT INFORMATION
  Report Type: Spontaneous
  Country: US (occurrence: US)
  Receive Date: 20130819
  Receipt Date: 20131230
  Transmission Date: 20140711
  Serious: No
  Sender: FDA-Public Use
  Company Number: US-PFIZER INC-2013235705

PATIENT
  Age: 77 Year
  Sex: Female
  Weight: 71.2 kg

DRUGS (5)
  1. TOVIAZ [Suspect]
     Indication: HYPERTONIC BLADDER
     Dosage: 4 MG, DAILY
     Route: 048
     Dates: start: 20130627, end: 2013
  2. TOVIAZ [Suspect]
     Indication: POLLAKIURIA
     Dosage: 8 MG, DAILY
     Route: 048
     Dates: start: 2013, end: 20130822
  3. LEVOTHYROXINE [Concomitant]
     Indication: BASEDOW^S DISEASE
     Dosage: 100 UG, DAILY
  4. ATENOLOL [Concomitant]
     Dosage: 25 MG, DAILY
  5. LOSARTAN POTASSIUM W/HYDROCHLOROTHIAZIDE [Concomitant]
     Dosage: 100 LOSARTAN POTASSIUM/12.5 HYDROCHLOROTHIAZIDE, 1X/DAY

REACTIONS (6)
  - Dysphonia [Unknown]
  - Oropharyngeal pain [Recovered/Resolved]
  - Dry throat [Recovered/Resolved]
  - Drug ineffective [Unknown]
  - Constipation [Recovered/Resolved]
  - Dry mouth [Recovered/Resolved]
